FAERS Safety Report 6210177-3 (Version None)
Quarter: 2009Q2

REPORT INFORMATION
  Report Type: 
  Country: None (occurrence: None)
  Receive Date: 20090601
  Receipt Date: 20090527
  Transmission Date: 20091009
  Serious: Yes (Death, Hospitalization, Other)
  Sender: FDA-Public Use
  Company Number: US-ABBOTT-09P-163-0576287-00

PATIENT
  Sex: Male

DRUGS (3)
  1. ZEMPLAR [Suspect]
     Indication: HYPERPARATHYROIDISM
     Dates: start: 20070101, end: 20090101
  2. HEPARIN [Suspect]
     Indication: PULMONARY EMBOLISM
     Dates: end: 20090524
  3. NORVASC [Concomitant]
     Indication: HYPERTENSION
     Dates: end: 20090526

REACTIONS (8)
  - BLOOD PRESSURE DECREASED [None]
  - CARDIAC ARREST [None]
  - ELECTROMECHANICAL DISSOCIATION [None]
  - HEPARIN-INDUCED THROMBOCYTOPENIA [None]
  - HYPERSENSITIVITY [None]
  - RENAL FAILURE [None]
  - RESPIRATORY ARREST [None]
  - THROMBOSIS [None]
